FAERS Safety Report 5700576-8 (Version None)
Quarter: 2008Q2

REPORT INFORMATION
  Report Type: 
  Country: None (occurrence: None)
  Receive Date: 20080410
  Receipt Date: 20080328
  Transmission Date: 20081010
  Serious: Yes (Other)
  Sender: FDA-Public Use
  Company Number: US-BAYER-200811219BCC

PATIENT
  Age: 80 Year
  Sex: Male
  Weight: 64 kg

DRUGS (9)
  1. ALEVE (CAPLET) [Suspect]
     Indication: PAIN
     Route: 048
  2. ALEVE (CAPLET) [Suspect]
     Dosage: UNIT DOSE: 220 MG
     Route: 048
  3. FOLIC ACID [Concomitant]
  4. LISINOPRIL [Concomitant]
  5. EQUATE ASPIRIN [Concomitant]
  6. GARLIC [Concomitant]
  7. SULFAZINE [Concomitant]
  8. FLOMAX [Concomitant]
  9. OMEPRAZOLE [Concomitant]

REACTIONS (1)
  - INTESTINAL HAEMORRHAGE [None]
